FAERS Safety Report 7820464 (Version 2)
Quarter: 2014Q2

REPORT INFORMATION
  Report Type: Report from Study
  Country: US (occurrence: US)
  Receive Date: 20110221
  Receipt Date: 20140618
  Transmission Date: 20141212
  Serious: Yes (Hospitalization, Other)
  Sender: FDA-Public Use
  Company Number: PHHY2011US11217

PATIENT
  Age: 38 Year
  Sex: Female
  Weight: 63 kg

DRUGS (13)
  1. NEORAL [Suspect]
     Indication: PROPHYLAXIS AGAINST TRANSPLANT REJECTION
     Dosage: 150 MG, DAILY
     Route: 048
     Dates: start: 19910210
  2. NEORAL [Suspect]
     Dosage: 125 MG, DAILY
     Route: 048
     Dates: start: 19990101
  3. PREDNISONE [Concomitant]
     Indication: PROPHYLAXIS AGAINST TRANSPLANT REJECTION
     Dosage: 50 MG, DAILY
     Route: 048
     Dates: start: 19910210
  4. PREDNISONE [Concomitant]
     Dosage: 5 MG, DAILY
     Dates: start: 19960101
  5. IMURAN [Concomitant]
     Indication: RENAL TRANSPLANT
     Dosage: 100 MG,  DAILY
     Dates: start: 19910210
  6. IMURAN [Concomitant]
     Indication: PROPHYLAXIS AGAINST TRANSPLANT REJECTION
     Dosage: 25 MG, DAILY
     Dates: start: 20080121
  7. RAMIPRIL [Concomitant]
     Indication: BLOOD PRESSURE INCREASED
     Dosage: 5 MG, DAILY
     Route: 048
     Dates: start: 20020101
  8. RAMIPRIL [Concomitant]
     Indication: HYPERTENSION
     Dosage: 2.5 MG, DAILY
     Route: 048
     Dates: start: 20080630, end: 20110110
  9. METOCLOPRAMIDE [Concomitant]
     Indication: NAUSEA
     Dosage: UNK UKN, UNK
  10. ONDANSETRON [Concomitant]
     Indication: VOMITING
     Dosage: UNK UKN, UNK
  11. LOPERAMIDE [Concomitant]
     Indication: DIARRHOEA
     Dosage: UNK UKN, UNK
  12. DEXAMETHASONE [Concomitant]
     Indication: NAUSEA
     Dosage: UNK UKN, UNK
  13. PROPRANOLOL [Concomitant]
     Indication: HYPERTENSION
     Dosage: UNK UKN, UNK

REACTIONS (16)
  - Clostridium difficile infection [Unknown]
  - Ligament rupture [Unknown]
  - Major depression [Unknown]
  - Infertility female [Unknown]
  - Molluscum contagiosum [Unknown]
  - Malignant melanoma [Unknown]
  - Cervix carcinoma [Unknown]
  - Breast cancer [Unknown]
  - Intraductal proliferative breast lesion [Unknown]
  - Generalised anxiety disorder [Unknown]
  - Osteoporosis [Unknown]
  - Vitamin D deficiency [Unknown]
  - Osteoarthritis [Unknown]
  - Gout [Unknown]
  - Blood cholesterol increased [Unknown]
  - Anaemia [Unknown]
